FAERS Safety Report 6839692-6 (Version None)
Quarter: 2010Q2

REPORT INFORMATION
  Report Type: 
  Country: None (occurrence: None)
  Receive Date: 20100629
  Receipt Date: 20100511
  Transmission Date: 20101027
  Serious: No
  Sender: FDA-Public Use
  Company Number: US-WYE-H10724009

PATIENT
  Age: 41 Year
  Sex: Female
  Weight: 59.02 kg

DRUGS (6)
  1. PRISTIQ [Suspect]
     Indication: DEPRESSION
     Dosage: 50 MG 1X PER 1 DAY, ORAL : 50 MG 1X PER 1 DAY, ORAL : 100 MG 1X PER 1 DAY, ORAL
     Route: 048
     Dates: start: 20090820, end: 20090901
  2. PRISTIQ [Suspect]
     Indication: DEPRESSION
     Dosage: 50 MG 1X PER 1 DAY, ORAL : 50 MG 1X PER 1 DAY, ORAL : 100 MG 1X PER 1 DAY, ORAL
     Route: 048
     Dates: start: 20090901, end: 20100510
  3. PRISTIQ [Suspect]
     Indication: DEPRESSION
     Dosage: 50 MG 1X PER 1 DAY, ORAL : 50 MG 1X PER 1 DAY, ORAL : 100 MG 1X PER 1 DAY, ORAL
     Route: 048
     Dates: start: 20100511
  4. ATIVAN [Concomitant]
  5. XANAX [Concomitant]
  6. BUSIPIRONE (BUSPIRONE) [Concomitant]

REACTIONS (3)
  - DECREASED APPETITE [None]
  - FATIGUE [None]
  - WEIGHT INCREASED [None]
